FAERS Safety Report 16935188 (Version 1)
Quarter: 2019Q4

REPORT INFORMATION
  Report Type: Spontaneous
  Country: GB (occurrence: GB)
  Receive Date: 20191018
  Receipt Date: 20191018
  Transmission Date: 20200122
  Serious: Yes (Hospitalization)
  Sender: FDA-Public Use
  Company Number: GB-MYLANLABS-2019M1097604

PATIENT
  Age: 42 Year
  Sex: Male
  Weight: 98 kg

DRUGS (4)
  1. OMEPRAZOLE. [Concomitant]
     Active Substance: OMEPRAZOLE
     Indication: GASTROOESOPHAGEAL REFLUX DISEASE
     Dosage: UNK
  2. MONTELUKAST [Concomitant]
     Active Substance: MONTELUKAST SODIUM
     Indication: HYPERSENSITIVITY
     Dosage: UNK
  3. SERTRALINE [Suspect]
     Active Substance: SERTRALINE HYDROCHLORIDE
     Indication: DEPRESSION
     Dosage: 50 MILLIGRAM, QD
     Route: 048
     Dates: start: 20190625, end: 20190627
  4. LORATADINE. [Concomitant]
     Active Substance: LORATADINE
     Indication: HYPERSENSITIVITY
     Dosage: UNK

REACTIONS (6)
  - Diarrhoea [Unknown]
  - Vomiting [Unknown]
  - Depressed mood [Recovering/Resolving]
  - Suicidal ideation [Recovering/Resolving]
  - Headache [Unknown]
  - Confusional state [Recovering/Resolving]

NARRATIVE: CASE EVENT DATE: 20190626
